FAERS Safety Report 5815445-2 (Version None)
Quarter: 2008Q3

REPORT INFORMATION
  Report Type: 
  Country: None (occurrence: None)
  Receive Date: 20080715
  Receipt Date: 20080709
  Transmission Date: 20090109
  Serious: Yes (Life-Threatening, Hospitalization, Other)
  Sender: FDA-Public Use
  Company Number: 062-21880-08050681

PATIENT
  Age: 67 Year
  Sex: Male
  Weight: 110 kg

DRUGS (9)
  1. REVLIMID [Suspect]
     Indication: MULTIPLE MYELOMA
     Dosage: 25 MG, 1 IN 1 D, ORAL; ORAL
     Route: 048
     Dates: start: 20080415
  2. MIXTARD HUMAN 70/30 [Suspect]
     Indication: DIABETES MELLITUS
  3. DEXAMETHASONE [Concomitant]
  4. RAMIPRIL [Concomitant]
  5. HYDROCHLOROTHIAZIDE [Concomitant]
  6. OMEPRAZOLE [Concomitant]
  7. ALLOPURINOL [Concomitant]
  8. MAGNESIUM SULFATE [Concomitant]
  9. EPOETIN ALFA [Concomitant]

REACTIONS (16)
  - ANXIETY [None]
  - BLOOD CREATININE INCREASED [None]
  - BONE LESION [None]
  - DYSPNOEA [None]
  - FATIGUE [None]
  - GENERAL PHYSICAL HEALTH DETERIORATION [None]
  - HAEMOGLOBIN DECREASED [None]
  - INCORRECT DOSE ADMINISTERED [None]
  - NAUSEA [None]
  - OSTEOCHONDROSIS [None]
  - PAIN [None]
  - PANIC ATTACK [None]
  - SKIN LACERATION [None]
  - SUICIDE ATTEMPT [None]
  - VOMITING [None]
  - WHITE BLOOD CELL COUNT DECREASED [None]
